FAERS Safety Report 8975867 (Version 2)
Quarter: 2013Q2

REPORT INFORMATION
  Report Type: Spontaneous
  Country: US (occurrence: US)
  Receive Date: 20121219
  Receipt Date: 20130626
  Transmission Date: 20140414
  Serious: Yes (Other)
  Sender: FDA-Public Use
  Company Number: CHPA2012US025079

PATIENT
  Age: 70 Year
  Sex: Female

DRUGS (1)
  1. EXCEDRIN EXTRA STRENGTH [Suspect]
     Indication: DIZZINESS
     Dosage: 1 DF, PRN
     Route: 048

REACTIONS (11)
  - Tendon injury [Recovered/Resolved]
  - Thyroid neoplasm [Not Recovered/Not Resolved]
  - Gallbladder disorder [Recovered/Resolved]
  - Chest pain [Recovered/Resolved]
  - Gastrooesophageal reflux disease [Not Recovered/Not Resolved]
  - Vomiting [Recovered/Resolved]
  - Dizziness [Recovered/Resolved]
  - Therapeutic response unexpected [Unknown]
  - Off label use [Unknown]
  - Underdose [Unknown]
  - Expired drug administered [Unknown]
